FAERS Safety Report 19444361 (Version 3)
Quarter: 2021Q3

REPORT INFORMATION
  Report Type: Spontaneous
  Country: US (occurrence: US)
  Receive Date: 20210621
  Receipt Date: 20210802
  Transmission Date: 20211014
  Serious: Yes (Life-Threatening, Hospitalization)
  Sender: FDA-Public Use
  Company Number: NVSC2021US138829

PATIENT
  Age: 74 Year
  Sex: Male

DRUGS (1)
  1. VOTRIENT [Suspect]
     Active Substance: PAZOPANIB HYDROCHLORIDE
     Indication: RENAL CANCER
     Dosage: 200 MG, QID
     Route: 048
     Dates: start: 20200312, end: 20210618

REACTIONS (4)
  - Dementia [Unknown]
  - Overdose [Recovered/Resolved]
  - Incorrect dose administered [Unknown]
  - Confusional state [Unknown]

NARRATIVE: CASE EVENT DATE: 20210617
